FAERS Safety Report 18853502 (Version 2)
Quarter: 2021Q1

REPORT INFORMATION
  Report Type: Spontaneous
  Country: US (occurrence: US)
  Receive Date: 20210205
  Receipt Date: 20210311
  Transmission Date: 20210420
  Serious: No
  Sender: FDA-Public Use
  Company Number: US-GLAXOSMITHKLINE-US2021019692

PATIENT
  Age: 70 Year
  Sex: Female

DRUGS (2)
  1. ZEJULA [Suspect]
     Active Substance: NIRAPARIB
     Indication: OVARIAN CANCER
     Dosage: 200 MG, QD
     Dates: start: 20210125
  2. ZEJULA [Suspect]
     Active Substance: NIRAPARIB
     Dosage: 200 MG, QD

REACTIONS (9)
  - Flushing [Recovering/Resolving]
  - Abdominal distension [Unknown]
  - Rash [Recovering/Resolving]
  - Condition aggravated [Recovering/Resolving]
  - Erythema [Unknown]
  - Abdominal discomfort [Unknown]
  - Pruritus [Recovering/Resolving]
  - Platelet count decreased [Unknown]
  - Swelling face [Recovering/Resolving]

NARRATIVE: CASE EVENT DATE: 20210126
